FAERS Safety Report 9727732 (Version 1)
Quarter: 2013Q4

REPORT INFORMATION
  Report Type: Spontaneous
  Country: US (occurrence: US)
  Receive Date: 20131203
  Receipt Date: 20131203
  Transmission Date: 20140711
  Serious: Yes (Other)
  Sender: FDA-Public Use
  Company Number: US-ENDO PHARMACEUTICALS INC.-AMIT20120005

PATIENT
  Age: 53 Year
  Sex: Male
  Weight: 93.98 kg

DRUGS (4)
  1. AMITRIPTYLINE HCL [Suspect]
     Indication: PAIN
     Dosage: UNK
     Route: 048
  2. OXYCODONE [Suspect]
     Indication: PAIN
     Dosage: UNK
     Route: 048
  3. HYDROXYZINE [Concomitant]
     Indication: INSOMNIA
     Dosage: UNK
     Route: 048
  4. ENOXAPARIN [Concomitant]
     Indication: THROMBOSIS PROPHYLAXIS
     Route: 058
     Dates: start: 20120215

REACTIONS (2)
  - Accidental overdose [Recovered/Resolved]
  - Drug ineffective for unapproved indication [Unknown]
